FAERS Safety Report 8927604 (Version 3)
Quarter: 2013Q1

REPORT INFORMATION
  Report Type: Spontaneous
  Country: TR (occurrence: TR)
  Receive Date: 20121127
  Receipt Date: 20130315
  Transmission Date: 20140127
  Serious: Yes (Other)
  Sender: FDA-Public Use
  Company Number: TR-PFIZER INC-2012295907

PATIENT
  Sex: 0

DRUGS (1)
  1. DOSTINEX [Suspect]
     Indication: HYPERPROLACTINAEMIA
     Dosage: 1 MG, WEEKLY
     Dates: start: 201211, end: 201211

REACTIONS (1)
  - Haemolytic anaemia [Recovered/Resolved]
